FAERS Safety Report 12046053 (Version 3)
Quarter: 2016Q4

REPORT INFORMATION
  Report Type: Report from Study
  Country: US (occurrence: US)
  Receive Date: 20160209
  Receipt Date: 20161230
  Transmission Date: 20170206
  Serious: Yes (Death, Hospitalization)
  Sender: FDA-Public Use
  Company Number: US-CELGENEUS-USA-2016020927

PATIENT
  Age: 72 Year
  Sex: Female
  Weight: 69.46 kg

DRUGS (4)
  1. CARFILZOMIB [Suspect]
     Active Substance: CARFILZOMIB
     Indication: PLASMA CELL MYELOMA
     Dosage: DAYS 1,2,8,9,15 AND 16 OF 21 DAY CYCLE
     Route: 041
     Dates: start: 20160125, end: 20160126
  2. REVLIMID [Suspect]
     Active Substance: LENALIDOMIDE
     Indication: PLASMA CELL MYELOMA
     Dosage: 15 MILLIGRAM
     Route: 048
     Dates: start: 20151124, end: 20160120
  3. REVLIMID [Suspect]
     Active Substance: LENALIDOMIDE
     Dosage: 10 MILLIGRAM
     Route: 048
     Dates: start: 20160125, end: 20160129
  4. DEXAMETHASONE. [Suspect]
     Active Substance: DEXAMETHASONE
     Indication: PLASMA CELL MYELOMA
     Dosage: DAYS 1,2,8,9,15 AND 16 OF 21 DAY CYCLE
     Route: 041
     Dates: start: 20160125, end: 20160126

REACTIONS (4)
  - Acute respiratory failure [Fatal]
  - Anaemia [Fatal]
  - Plasma cell leukaemia [Fatal]
  - Thrombocytopenia [Fatal]

NARRATIVE: CASE EVENT DATE: 20160129
